FAERS Safety Report 24009592 (Version 1)
Quarter: 2024Q2

REPORT INFORMATION
  Report Type: Report from Study
  Country: AU (occurrence: AU)
  Receive Date: 20240625
  Receipt Date: 20240625
  Transmission Date: 20240717
  Serious: Yes (Hospitalization, Other)
  Sender: FDA-Public Use
  Company Number: AU-BAXTER-2024BAX020116

PATIENT
  Age: 78 Year
  Sex: Female
  Weight: 78.3 kg

DRUGS (27)
  1. CYCLOPHOSPHAMIDE [Suspect]
     Active Substance: CYCLOPHOSPHAMIDE
     Indication: Diffuse large B-cell lymphoma stage IV
     Dosage: 1402.5 MG, EVERY 3 WEEKS
     Route: 042
     Dates: start: 20240510
  2. DOXORUBICIN [Suspect]
     Active Substance: DOXORUBICIN
     Indication: Diffuse large B-cell lymphoma stage IV
     Dosage: 93.5 MG, EVERY 3 WEEKS
     Route: 042
     Dates: start: 20240510
  3. EPCORITAMAB [Suspect]
     Active Substance: EPCORITAMAB
     Indication: Diffuse large B-cell lymphoma stage IV
     Dosage: 0.16 MG PRIMING DOSE; C1, D1, TOTAL
     Route: 058
     Dates: start: 20240510, end: 20240510
  4. EPCORITAMAB [Suspect]
     Active Substance: EPCORITAMAB
     Dosage: 0.8 MG INTERMEDIATE DOSE; C1, D8, TOTAL
     Route: 058
     Dates: start: 20240517, end: 20240517
  5. EPCORITAMAB [Suspect]
     Active Substance: EPCORITAMAB
     Dosage: 48 MG FULL DOSE; C1, D15, TOTAL
     Route: 058
     Dates: start: 20240524, end: 20240524
  6. EPCORITAMAB [Suspect]
     Active Substance: EPCORITAMAB
     Dosage: 48 MG C2- 4, D1, 8 + 1, EVERY 1 WEEKS
     Route: 058
     Dates: start: 20240531
  7. PREDNISONE [Suspect]
     Active Substance: PREDNISONE
     Indication: Diffuse large B-cell lymphoma stage IV
     Dosage: 100 MG DAILY C1-6, DAY 1-5, EVERY 1 DAYS
     Route: 048
     Dates: start: 20240510
  8. VINCRISTINE [Suspect]
     Active Substance: VINCRISTINE
     Indication: Diffuse large B-cell lymphoma stage IV
     Dosage: 2 MG, EVERY 3 WEEKS
     Route: 042
     Dates: start: 20240510
  9. RITUXIMAB [Suspect]
     Active Substance: RITUXIMAB
     Indication: Diffuse large B-cell lymphoma stage IV
     Dosage: 701.25 MG, EVERY 3 WEEKS
     Route: 042
     Dates: start: 20240510
  10. ALLOPURINOL [Concomitant]
     Active Substance: ALLOPURINOL
     Indication: Prophylaxis
     Dosage: 300 MG, EVERY 1 DAYS
     Route: 065
     Dates: start: 20240504
  11. SULFAMETHOXAZOLE\TRIMETHOPRIM [Concomitant]
     Active Substance: SULFAMETHOXAZOLE\TRIMETHOPRIM
     Indication: Antibiotic prophylaxis
     Dosage: 160/800 MG, 3/WEEKS
     Route: 065
     Dates: start: 20240507
  12. PANTOPRAZOLE [Concomitant]
     Active Substance: PANTOPRAZOLE
     Indication: Gastrooesophageal reflux disease
     Dosage: 40 MG, EVERY 1 DAYS
     Route: 065
     Dates: start: 20240504
  13. PALONOSETRON [Concomitant]
     Active Substance: PALONOSETRON
     Indication: Prophylaxis of nausea and vomiting
     Dosage: 250 MG, EVERY 3 WEEKS
     Route: 065
     Dates: start: 20240510
  14. ACETAMINOPHEN [Concomitant]
     Active Substance: ACETAMINOPHEN
     Indication: Antipyresis
     Dosage: 1000 MG, EVERY 3 WEEKS
     Route: 065
     Dates: start: 20240510
  15. LORATADINE [Concomitant]
     Active Substance: LORATADINE
     Indication: Prophylaxis
     Dosage: 10 MG, EVERY 3 WEEKS
     Route: 065
     Dates: start: 20240510
  16. VALACYCLOVIR HYDROCHLORIDE [Concomitant]
     Active Substance: VALACYCLOVIR HYDROCHLORIDE
     Indication: Antiviral prophylaxis
     Dosage: 500 MG, EVERY 1 DAYS
     Route: 065
     Dates: start: 20240504
  17. LIPEGFILGRASTIM [Concomitant]
     Active Substance: LIPEGFILGRASTIM
     Indication: Prophylaxis
     Dosage: 6 MG, EVERY 3 WEEKS
     Route: 065
     Dates: start: 20240511
  18. IRBESARTAN AND HYDROCHLOROTHIAZIDE [Concomitant]
     Active Substance: HYDROCHLOROTHIAZIDE\IRBESARTAN
     Indication: Hypertension
     Dosage: 300/12.5 MG, EVERY 1 DAYS
     Route: 065
     Dates: start: 20240503, end: 20240609
  19. BISOPROLOL [Concomitant]
     Active Substance: BISOPROLOL\BISOPROLOL FUMARATE
     Indication: Hypertension
     Dosage: 2.5 MG, EVERY 1 DAYS
     Route: 065
     Dates: start: 20240503
  20. PRAVASTATIN [Concomitant]
     Active Substance: PRAVASTATIN
     Indication: Hypercholesterolaemia
     Dosage: 80 MG, EVERY 1 DAYS
     Route: 065
     Dates: start: 20240503
  21. TAPENTADOL [Concomitant]
     Active Substance: TAPENTADOL
     Indication: Pain prophylaxis
     Dosage: 50 MG, AS NECESSARY
     Route: 065
     Dates: start: 20240507
  22. CELEBREX [Concomitant]
     Active Substance: CELECOXIB
     Indication: Prophylaxis
     Dosage: 100 MG, AS NECESSARY
     Route: 065
     Dates: start: 20240510
  23. MOVICOL [Concomitant]
     Active Substance: POLYETHYLENE GLYCOL 3350\POTASSIUM CHLORIDE\SODIUM BICARBONATE\SODIUM CHLORIDE
     Indication: Constipation
     Dosage: 2 SACHET, AS NECESSARY
     Route: 065
     Dates: start: 20240503
  24. TEMAZEPAM [Concomitant]
     Active Substance: TEMAZEPAM
     Indication: Insomnia
     Dosage: 10-20 MG, AS NECESSARY
     Route: 065
     Dates: start: 20240506
  25. PREGABALIN [Concomitant]
     Active Substance: PREGABALIN
     Indication: Neuralgia
     Dosage: 25 MG, 2/DAYS
     Route: 065
     Dates: start: 20240531, end: 20240610
  26. PREDNISOLONE [Concomitant]
     Active Substance: PREDNISOLONE
     Indication: Prophylaxis
     Dosage: 100 MG, EVERY 1 DAYS
     Route: 065
     Dates: start: 20240517, end: 20240520
  27. PREDNISOLONE [Concomitant]
     Active Substance: PREDNISOLONE
     Dosage: 100 MG, EVERY 1 DAYS
     Route: 065
     Dates: start: 20240524, end: 20240527

REACTIONS (1)
  - Syncope [Unknown]

NARRATIVE: CASE EVENT DATE: 20240608
